FAERS Safety Report 7906674-2 (Version None)
Quarter: 2011Q4

REPORT INFORMATION
  Report Type: 
  Country: None (occurrence: None)
  Receive Date: 20111110
  Receipt Date: 20111107
  Transmission Date: 20120403
  Serious: Yes (Death)
  Sender: FDA-Public Use
  Company Number: US-JNJFOC-20111103125

PATIENT
  Age: 73 Year
  Sex: Male

DRUGS (8)
  1. ABIRATERONE ACETATE [Suspect]
     Indication: PROSTATE CANCER METASTATIC
     Route: 048
     Dates: start: 20110812, end: 20111030
  2. ASPIRIN [Concomitant]
     Route: 065
  3. METFORMIN HCL [Concomitant]
     Route: 065
  4. CRESTOR [Concomitant]
     Route: 065
  5. OMEPRAZOLE [Concomitant]
     Route: 065
  6. PREDNISONE TAB [Suspect]
     Indication: PROSTATE CANCER METASTATIC
     Route: 048
     Dates: start: 20110812, end: 20111030
  7. MULTI-VITAMINS [Concomitant]
     Route: 065
  8. ABIRATERONE ACETATE [Suspect]
     Route: 048

REACTIONS (2)
  - ACUTE MYOCARDIAL INFARCTION [None]
  - SUDDEN DEATH [None]
